FAERS Safety Report 8175506-2 (Version None)
Quarter: 2012Q1

REPORT INFORMATION
  Report Type: 
  Country: None (occurrence: None)
  Receive Date: 20120229
  Receipt Date: 20120227
  Transmission Date: 20120608
  Serious: Yes (Other)
  Sender: FDA-Public Use
  Company Number: US-MERCK-1202USA01818

PATIENT
  Age: 77 Year
  Sex: Male

DRUGS (7)
  1. CRESTOR [Concomitant]
     Route: 065
  2. LOTREL [Concomitant]
     Route: 065
  3. METFORMIN [Concomitant]
     Route: 065
  4. PRADAXA [Concomitant]
     Route: 065
  5. DIOVAN [Concomitant]
     Route: 065
  6. DIGOXIN [Concomitant]
     Route: 065
  7. JANUVIA [Suspect]
     Indication: TYPE 2 DIABETES MELLITUS
     Route: 048
     Dates: start: 20061214

REACTIONS (1)
  - BLADDER CANCER [None]
